FAERS Safety Report 8171023-4 (Version None)
Quarter: 2012Q1

REPORT INFORMATION
  Report Type: 
  Country: None (occurrence: None)
  Receive Date: 20120113
  Receipt Date: 20111019
  Transmission Date: 20120608
  Serious: No
  Sender: FDA-Public Use
  Company Number: 2011S1000085

PATIENT
  Age: 87 Year
  Sex: Female
  Weight: 74.8435 kg

DRUGS (12)
  1. SYNTHROID [Concomitant]
  2. PROPAFENONE HCL [Concomitant]
  3. SOLU-MEDROL [Concomitant]
  4. LASIX [Concomitant]
  5. PREVACID [Concomitant]
  6. TYLENOL (CAPLET) [Concomitant]
  7. ALDACTONE /00252502/ [Concomitant]
  8. DETROL LA [Concomitant]
  9. KRYSTEXXA [Suspect]
     Indication: GOUT
     Dosage: 8 MG;X1;IV
     Route: 042
     Dates: start: 20110922, end: 20110922
  10. KRYSTEXXA [Suspect]
     Indication: GOUT
     Dosage: 8 MG;X1;IV
     Route: 042
     Dates: start: 20110908, end: 20110908
  11. BENADRYL /00945501/ [Concomitant]
  12. TOPROL-XL [Concomitant]

REACTIONS (6)
  - DIZZINESS [None]
  - CHEST DISCOMFORT [None]
  - ASTHENIA [None]
  - PALPITATIONS [None]
  - DIARRHOEA [None]
  - DYSPNOEA [None]
